FAERS Safety Report 11666545 (Version 1)
Quarter: 2015Q4

REPORT INFORMATION
  Report Type: Spontaneous
  Country: US (occurrence: US)
  Receive Date: 20151027
  Receipt Date: 20151027
  Transmission Date: 20160304
  Serious: No
  Sender: FDA-Public Use
  Company Number: US-ELI_LILLY_AND_COMPANY-US201002002098

PATIENT
  Age: 84 Year
  Sex: Female

DRUGS (1)
  1. FORTEO [Suspect]
     Active Substance: TERIPARATIDE
     Indication: OSTEOPOROSIS
     Dosage: 20 UG, DAILY (1/D)
     Dates: start: 200911

REACTIONS (13)
  - Pollakiuria [Unknown]
  - Restlessness [Unknown]
  - Thirst [Unknown]
  - Aphonia [Unknown]
  - Speech disorder [Unknown]
  - Dysuria [Unknown]
  - Thirst [Unknown]
  - Eating disorder [Unknown]
  - Dyspnoea [Unknown]
  - Hunger [Unknown]
  - Feeling abnormal [Unknown]
  - Diabetes mellitus [Unknown]
  - Fatigue [Unknown]

NARRATIVE: CASE EVENT DATE: 20100129
